FAERS Safety Report 4894339-3 (Version None)
Quarter: 2006Q1

REPORT INFORMATION
  Report Type: 
  Country: None (occurrence: None)
  Receive Date: 20060127
  Receipt Date: 20050615
  Transmission Date: 20060701
  Serious: No
  Sender: FDA-Public Use
  Company Number: US-BRISTOL-MYERS SQUIBB COMPANY-13004973

PATIENT
  Sex: Male

DRUGS (9)
  1. ULTRAVATE [Suspect]
     Indication: PSORIASIS
     Route: 061
  2. ASPIRIN [Concomitant]
  3. ENALAPRIL [Concomitant]
  4. PRAVACHOL [Concomitant]
  5. LORAZEPAM [Concomitant]
  6. CYTOTEC [Concomitant]
  7. RHINOCORT [Concomitant]
  8. MAXAIR [Concomitant]
  9. PROVENTIL [Concomitant]

REACTIONS (1)
  - DRUG INEFFECTIVE [None]
